FAERS Safety Report 7155962-9 (Version None)
Quarter: 2010Q4

REPORT INFORMATION
  Report Type: 
  Country: None (occurrence: None)
  Receive Date: 20101214
  Receipt Date: 20101202
  Transmission Date: 20110411
  Serious: Yes (Other)
  Sender: FDA-Public Use
  Company Number: PHHY2010GR81889

PATIENT
  Age: 78 Year
  Sex: Female

DRUGS (5)
  1. ACLASTA [Suspect]
     Indication: OSTEOPOROSIS
     Dosage: 5 MG (ONCE EVERY YEAR)
     Route: 042
     Dates: start: 20090310
  2. ACLASTA [Suspect]
     Dosage: 5 MG (ONCE EVERY YEAR)
     Route: 042
     Dates: start: 20100928
  3. MEDROL [Concomitant]
  4. MABTHERA [Concomitant]
  5. METHOTREXAT [Concomitant]
     Indication: RHEUMATOID ARTHRITIS

REACTIONS (2)
  - OSTEONECROSIS OF JAW [None]
  - SURGERY [None]
